FAERS Safety Report 13910524 (Version 1)
Quarter: 2017Q3

REPORT INFORMATION
  Report Type: Spontaneous
  Country: US (occurrence: US)
  Receive Date: 20170828
  Receipt Date: 20170828
  Transmission Date: 20171127
  Serious: No
  Sender: FDA-Public Use
  Company Number: US-ALLERGAN-1718832US

PATIENT
  Sex: Male

DRUGS (3)
  1. PROZAC [Concomitant]
     Active Substance: FLUOXETINE HYDROCHLORIDE
     Indication: PRODUCT USED FOR UNKNOWN INDICATION
     Route: 065
  2. FETZIMA [Suspect]
     Active Substance: LEVOMILNACIPRAN HYDROCHLORIDE
     Indication: OBSESSIVE-COMPULSIVE DISORDER
     Dosage: 40 MG, UNK
     Route: 065
  3. FETZIMA [Suspect]
     Active Substance: LEVOMILNACIPRAN HYDROCHLORIDE
     Indication: PNEUMONIA
     Dosage: 20 MG, UNK
     Route: 065

REACTIONS (6)
  - Off label use [Unknown]
  - Nausea [Unknown]
  - Heart rate increased [Unknown]
  - Fatigue [Unknown]
  - Blood pressure increased [Unknown]
  - Constipation [Unknown]
